FAERS Safety Report 8610129-X (Version None)
Quarter: 2012Q3

REPORT INFORMATION
  Report Type: 
  Country: None (occurrence: None)
  Receive Date: 20120822
  Receipt Date: 20120814
  Transmission Date: 20120928
  Serious: No
  Sender: FDA-Public Use
  Company Number: US-BIOGENIDEC-2012BI031676

PATIENT
  Age: 40 Year
  Sex: Female

DRUGS (5)
  1. HYDROCODONE [Concomitant]
     Indication: PAIN
  2. TYSABRI [Suspect]
     Indication: MULTIPLE SCLEROSIS
     Route: 042
     Dates: start: 20081017, end: 20110405
  3. GABAPENTIN [Concomitant]
     Indication: PAIN
  4. PROVIGIL [Concomitant]
     Indication: FATIGUE
  5. TYSABRI [Suspect]
     Route: 042
     Dates: start: 20111221, end: 20120510

REACTIONS (8)
  - PYREXIA [None]
  - MOTOR DYSFUNCTION [None]
  - GAIT DISTURBANCE [None]
  - MUSCULAR WEAKNESS [None]
  - DYSSTASIA [None]
  - MULTIPLE SCLEROSIS RELAPSE [None]
  - HYPOAESTHESIA [None]
  - FATIGUE [None]
